FAERS Safety Report 13097861 (Version 6)
Quarter: 2017Q1

REPORT INFORMATION
  Report Type: Report from Study
  Country: CN (occurrence: CN)
  Receive Date: 20170109
  Receipt Date: 20170317
  Transmission Date: 20170428
  Serious: Yes (Hospitalization, Other)
  Sender: FDA-Public Use
  Company Number: CN-GLAXOSMITHKLINE-CN2017GSK000328

PATIENT
  Age: 41 Year
  Sex: Female
  Weight: 56 kg

DRUGS (7)
  1. PLACEBO [Suspect]
     Active Substance: UNSPECIFIED INGREDIENT
     Indication: SYSTEMIC LUPUS ERYTHEMATOSUS
     Dosage: UNK
     Dates: start: 20130821, end: 20140722
  2. DIPYRIDAMOLE. [Concomitant]
     Active Substance: DIPYRIDAMOLE
     Dosage: 25 MG, TID
     Dates: start: 20170106
  3. CALCIUM CHEWABLE TABLET [Concomitant]
     Indication: SYSTEMIC LUPUS ERYTHEMATOSUS
     Dosage: 0.6 G, 1D
     Route: 048
     Dates: start: 20130514
  4. TOTAL GLUCOSIDES OF PAEONY [Concomitant]
     Indication: SYSTEMIC LUPUS ERYTHEMATOSUS
     Dosage: 0.6 MG, BID
     Route: 048
     Dates: start: 20130514
  5. BELIMUMAB [Suspect]
     Active Substance: BELIMUMAB
     Indication: SYSTEMIC LUPUS ERYTHEMATOSUS
     Dosage: 10 MG/KG, CYC
     Route: 042
     Dates: start: 20140821
  6. CALCITRIOL. [Concomitant]
     Active Substance: CALCITRIOL
     Indication: SYSTEMIC LUPUS ERYTHEMATOSUS
     Dosage: 0.25 ?G, 1D
     Route: 048
     Dates: start: 20150625
  7. TRANSFER FACTOR [Concomitant]
     Indication: SYSTEMIC LUPUS ERYTHEMATOSUS
     Dosage: 2 DF, BID
     Route: 048
     Dates: start: 20160202

REACTIONS (1)
  - Lupus nephritis [Recovering/Resolving]

NARRATIVE: CASE EVENT DATE: 20161206
